FAERS Safety Report 24269555 (Version 1)
Quarter: 2024Q3

REPORT INFORMATION
  Report Type: Spontaneous
  Country: US (occurrence: US)
  Receive Date: 20240830
  Receipt Date: 20240830
  Transmission Date: 20241016
  Serious: No
  Sender: ENDO
  Company Number: ENDG23-04204

PATIENT

DRUGS (7)
  1. PREDNISONE [Suspect]
     Active Substance: PREDNISONE
     Indication: Rheumatoid arthritis
     Dosage: UNK UNKNOWN, UNKNOWN (ONE TO TWO TABLETS IN THE MORNING)
     Route: 065
     Dates: start: 20221201
  2. NAPROXEN [Suspect]
     Active Substance: NAPROXEN
     Indication: Pain
     Dosage: 1 DF, BID
     Route: 065
     Dates: start: 20230711
  3. XELJANZ XR [Suspect]
     Active Substance: TOFACITINIB CITRATE
     Indication: Rheumatoid arthritis
     Dosage: 11 MG, DAILY
     Route: 048
     Dates: start: 20230728
  4. ETONOGESTREL [Suspect]
     Active Substance: ETONOGESTREL
     Indication: Product used for unknown indication
     Dosage: UNK UNKNOWN, UNKNOWN (ONE EACH)
     Route: 059
     Dates: start: 20230412
  5. LEFLUNOMIDE [Suspect]
     Active Substance: LEFLUNOMIDE
     Indication: Product used for unknown indication
     Dosage: 1 DF, OD (IN THE MORNING)
     Route: 048
     Dates: start: 20230410
  6. ERGOCALCIFEROL [Suspect]
     Active Substance: ERGOCALCIFEROL
     Indication: Product used for unknown indication
     Dosage: 1 DF, WEEKLY
     Route: 048
     Dates: start: 20230110
  7. FOLIC ACID [Suspect]
     Active Substance: FOLIC ACID
     Indication: Product used for unknown indication
     Dosage: 5 DF, DAILY
     Route: 048
     Dates: start: 20221206

REACTIONS (1)
  - Contusion [Unknown]
